FAERS Safety Report 6359109-8 (Version None)
Quarter: 2009Q3

REPORT INFORMATION
  Report Type: 
  Country: None (occurrence: None)
  Receive Date: 20090917
  Receipt Date: 20070607
  Transmission Date: 20100115
  Serious: Yes (Other)
  Sender: FDA-Public Use
  Company Number: US-ASTRAZENECA-2006UW22035

PATIENT
  Age: 11766 Day
  Sex: Female

DRUGS (18)
  1. SEROQUEL [Suspect]
     Indication: BIPOLAR DISORDER
     Route: 048
     Dates: start: 20000101
  2. SEROQUEL [Suspect]
     Indication: DEPRESSION
     Route: 048
     Dates: start: 20000101
  3. SEROQUEL [Suspect]
     Dosage: 300-1000 MG
     Route: 048
     Dates: start: 20030206
  4. SEROQUEL [Suspect]
     Dosage: 300-1000 MG
     Route: 048
     Dates: start: 20030206
  5. ABILIFY [Concomitant]
     Dates: start: 20061001, end: 20070101
  6. RISPERDAL [Concomitant]
     Dates: start: 20000601, end: 20001201
  7. SYNTHROID [Concomitant]
     Dates: start: 20031024
  8. ZYRTEC [Concomitant]
     Dates: start: 20030206
  9. ALTACE [Concomitant]
     Dates: start: 20030214
  10. HYDROCHLOROTHIAZIDE [Concomitant]
     Dates: start: 20031024
  11. ASPIRIN [Concomitant]
     Dates: start: 20050211
  12. AVANDAMET [Concomitant]
     Dates: start: 20050211
  13. DETROL LA [Concomitant]
     Dates: start: 20050211
  14. LEXAPRO [Concomitant]
     Dates: start: 20050211
  15. LIPITOR [Concomitant]
     Dates: start: 20050211
  16. LISINOPRIL [Concomitant]
     Dates: start: 20050211
  17. TRILEPTAL [Concomitant]
     Dates: start: 20050211
  18. VISTARIL [Concomitant]
     Dosage: 50-150 MG
     Dates: start: 20050211

REACTIONS (2)
  - DIABETES MELLITUS [None]
  - DIABETIC NEUROPATHY [None]
